FAERS Safety Report 10050988 (Version 2)
Quarter: 2014Q2

REPORT INFORMATION
  Report Type: Spontaneous
  Country: MG (occurrence: MG)
  Receive Date: 20140401
  Receipt Date: 20140416
  Transmission Date: 20141212
  Serious: Yes (Disabling)
  Sender: FDA-Public Use
  Company Number: MG-GLAXOSMITHKLINE-B0981654A

PATIENT
  Age: 52 Year
  Sex: Male

DRUGS (1)
  1. SERETIDE [Suspect]
     Indication: DYSPNOEA
     Dosage: 250MCG TWICE PER DAY
     Route: 055
     Dates: start: 20140208, end: 20140212

REACTIONS (3)
  - Eye oedema [Recovered/Resolved]
  - Dysphonia [Recovering/Resolving]
  - Throat irritation [Recovering/Resolving]
